FAERS Safety Report 21203669 (Version 1)
Quarter: 2022Q3

REPORT INFORMATION
  Report Type: Spontaneous
  Country: US (occurrence: US)
  Receive Date: 20220811
  Receipt Date: 20220811
  Transmission Date: 20221027
  Serious: Yes (Hospitalization)
  Sender: FDA-Public Use
  Company Number: US-LUNDBECK-DKLU3051336

PATIENT
  Age: 10 Month
  Sex: Male

DRUGS (2)
  1. SABRIL [Suspect]
     Active Substance: VIGABATRIN
     Indication: Infantile spasms
     Route: 048
     Dates: start: 202207
  2. SABRIL [Suspect]
     Active Substance: VIGABATRIN
     Route: 048

REACTIONS (1)
  - Pneumonia [Not Recovered/Not Resolved]
